FAERS Safety Report 17484986 (Version 1)
Quarter: 2020Q1

REPORT INFORMATION
  Report Type: Report from Study
  Country: US (occurrence: US)
  Receive Date: 20200302
  Receipt Date: 20200302
  Transmission Date: 20200409
  Serious: Yes (Hospitalization)
  Sender: FDA-Public Use
  Company Number: US-EISAI MEDICAL RESEARCH-EC-2020-069869

PATIENT
  Age: 57 Year
  Sex: Female
  Weight: 61 kg

DRUGS (2)
  1. LENVIMA [Suspect]
     Active Substance: LENVATINIB
     Route: 048
     Dates: start: 20200222
  2. LENVIMA [Suspect]
     Active Substance: LENVATINIB
     Indication: ENDOMETRIAL CANCER
     Route: 048
     Dates: start: 20200205, end: 202002

REACTIONS (16)
  - Retching [Unknown]
  - Cystitis [Recovering/Resolving]
  - Vomiting [Recovering/Resolving]
  - White blood cell count decreased [Recovering/Resolving]
  - Neck pain [Recovering/Resolving]
  - Pain in extremity [Recovering/Resolving]
  - Nausea [Unknown]
  - Weight decreased [Recovering/Resolving]
  - Blood pressure increased [Recovering/Resolving]
  - Poor quality sleep [Unknown]
  - Blood potassium decreased [Recovering/Resolving]
  - Fatigue [Unknown]
  - Abdominal discomfort [Unknown]
  - Dehydration [Recovering/Resolving]
  - Headache [Recovering/Resolving]
  - Pelvic discomfort [Unknown]

NARRATIVE: CASE EVENT DATE: 202002
